FAERS Safety Report 5624707-3 (Version None)
Quarter: 2008Q1

REPORT INFORMATION
  Report Type: 
  Country: None (occurrence: None)
  Receive Date: 20080213
  Receipt Date: 20080207
  Transmission Date: 20080703
  Serious: Yes (Life-Threatening, Hospitalization)
  Sender: FDA-Public Use
  Company Number: B0507532A

PATIENT
  Age: 50 Year
  Sex: Male
  Weight: 75 kg

DRUGS (2)
  1. AUGMENTIN '125' [Suspect]
     Indication: SINUSITIS
     Route: 048
     Dates: start: 20071001, end: 20071010
  2. URBASON [Suspect]
     Indication: SINUSITIS
     Dosage: 16MG PER DAY
     Route: 048
     Dates: start: 20071001, end: 20071010

REACTIONS (1)
  - HEPATITIS CHOLESTATIC [None]
